FAERS Safety Report 5339514-9 (Version None)
Quarter: 2007Q2

REPORT INFORMATION
  Report Type: 
  Country: None (occurrence: None)
  Receive Date: 20070521
  Receipt Date: 20070508
  Transmission Date: 20071010
  Serious: Yes (Hospitalization)
  Sender: FDA-Public Use
  Company Number: 2007319954

PATIENT
  Age: 28 Year
  Sex: Female
  Weight: 52.1637 kg

DRUGS (1)
  1. VISINE ADVANCE ALLERGY (PHENIRAMINE MALEATE, NAPHAZOLINE HYDROCHLORIDE [Suspect]
     Indication: EYE PRURITUS
     Dosage: 2 DROPS IN EACH EYE
     Dates: start: 20070504, end: 20070504

REACTIONS (5)
  - CONFUSIONAL STATE [None]
  - CONVULSION [None]
  - DIZZINESS [None]
  - HALLUCINATION [None]
  - SOMNOLENCE [None]
